FAERS Safety Report 9667693 (Version 1)
Quarter: 2013Q4

REPORT INFORMATION
  Report Type: Spontaneous
  Country: US (occurrence: US)
  Receive Date: 20131101
  Receipt Date: 20131101
  Transmission Date: 20140711
  Serious: No
  Sender: FDA-Public Use
  Company Number: US-SAVIENT-2012S1000043

PATIENT
  Age: 77 Year
  Sex: Male
  Weight: 79.38 kg

DRUGS (13)
  1. KRYSTEXXA INJECTION [Suspect]
     Indication: GOUT
     Route: 042
     Dates: start: 20120425, end: 20120425
  2. KRYSTEXXA INJECTION [Suspect]
     Indication: GOUT
     Route: 042
     Dates: start: 20120509, end: 20120509
  3. DEXAMETHASONE [Concomitant]
     Indication: PREMEDICATION
     Dates: start: 20120425, end: 20120425
  4. DEXAMETHASONE [Concomitant]
     Indication: PREMEDICATION
     Dates: start: 20120509, end: 20120509
  5. CLARITIN /00917501/ [Concomitant]
     Indication: PREMEDICATION
     Dates: start: 20120425, end: 20120425
  6. CLARITIN /00917501/ [Concomitant]
     Indication: PREMEDICATION
     Dates: start: 20120509, end: 20120509
  7. TYLENOL /00020001/ [Concomitant]
     Indication: PREMEDICATION
     Dates: start: 20120425, end: 20120425
  8. TYLENOL /00020001/ [Concomitant]
     Indication: PREMEDICATION
     Dates: start: 20120509, end: 20120509
  9. PLAVIX [Concomitant]
     Indication: THROMBOSIS PROPHYLAXIS
  10. ATENOLOL [Concomitant]
     Indication: TACHYCARDIA
  11. DOXAZOSIN [Concomitant]
     Indication: BENIGN PROSTATIC HYPERPLASIA
  12. IRON [Concomitant]
     Indication: SUPPLEMENTATION THERAPY
  13. PROBENECID [Concomitant]
     Indication: GOUT

REACTIONS (1)
  - Gout [Not Recovered/Not Resolved]
